FAERS Safety Report 8117836-6 (Version None)
Quarter: 2011Q4

REPORT INFORMATION
  Report Type: 
  Country: None (occurrence: None)
  Receive Date: 20111227
  Receipt Date: 20111027
  Transmission Date: 20120403
  Serious: No
  Sender: FDA-Public Use
  Company Number: PHHY2011US69600

PATIENT
  Age: 63 Year
  Sex: Female

DRUGS (1)
  1. GILENYA [Suspect]
     Dosage: 0.5 MG, DAILY, ORAL
     Route: 048
     Dates: start: 20110615

REACTIONS (6)
  - PYREXIA [None]
  - MYALGIA [None]
  - LYMPHADENOPATHY [None]
  - INFLUENZA LIKE ILLNESS [None]
  - CHILLS [None]
  - BURNING SENSATION [None]
